FAERS Safety Report 6092536-5 (Version None)
Quarter: 2009Q1

REPORT INFORMATION
  Report Type: 
  Country: None (occurrence: None)
  Receive Date: 20090225
  Receipt Date: 20070531
  Transmission Date: 20090719
  Serious: Yes (Death)
  Sender: FDA-Public Use
  Company Number: FR-PFIZER INC-2009165729

PATIENT

DRUGS (7)
  1. EPIRUBICIN HCL [Suspect]
     Indication: GASTRIC CANCER
     Dosage: 83 MG, CYCLIC
     Route: 042
     Dates: start: 20071005, end: 20071026
  2. CISPLATIN [Suspect]
     Indication: GASTRIC CANCER
     Dosage: 99 MG, CYCLIC
     Route: 042
     Dates: start: 20071005, end: 20071026
  3. VENOFER [Concomitant]
     Indication: ANAEMIA
     Dosage: 100 MG/DAY
     Route: 042
     Dates: start: 20070926, end: 20071002
  4. SEROPRAM [Concomitant]
     Dosage: 20 MG/DAY
     Route: 042
  5. NEXIUM [Concomitant]
     Indication: GASTRIC CANCER
     Dosage: 40 MG/DAY
     Route: 042
  6. EPOETIN BETA [Concomitant]
     Indication: ANAEMIA
     Dosage: UNK
     Route: 058
     Dates: start: 20071028, end: 20071028
  7. DURAGESIC-100 [Concomitant]
     Indication: PAIN
     Route: 062

REACTIONS (1)
  - GENERAL PHYSICAL HEALTH DETERIORATION [None]
